FAERS Safety Report 6920965-3 (Version None)
Quarter: 2010Q3

REPORT INFORMATION
  Report Type: 
  Country: None (occurrence: None)
  Receive Date: 20100812
  Receipt Date: 20100803
  Transmission Date: 20110219
  Serious: Yes (Other)
  Sender: FDA-Public Use
  Company Number: CH-PFIZER INC-2010097243

PATIENT
  Sex: Male

DRUGS (1)
  1. CLINDAMYCIN HCL [Suspect]
     Dosage: 600 MG, 3X/DAY

REACTIONS (4)
  - BLINDNESS TRANSIENT [None]
  - CONFUSIONAL STATE [None]
  - RENAL IMPAIRMENT [None]
  - VISUAL FIELD DEFECT [None]
